FAERS Safety Report 23090048 (Version 1)
Quarter: 2023Q4

REPORT INFORMATION
  Report Type: Spontaneous
  Country: US (occurrence: US)
  Receive Date: 20231020
  Receipt Date: 20231020
  Transmission Date: 20240110
  Serious: Yes (Other)
  Sender: FDA-Public Use
  Company Number: US-MYLANLABS-2023M1108938

PATIENT
  Age: 70 Year
  Sex: Male

DRUGS (1)
  1. ADENOSINE [Suspect]
     Active Substance: ADENOSINE
     Indication: Atrial flutter
     Dosage: UNK
     Route: 065

REACTIONS (1)
  - Drug ineffective [Unknown]
